FAERS Safety Report 8392283-0 (Version None)
Quarter: 2012Q2

REPORT INFORMATION
  Report Type: 
  Country: None (occurrence: None)
  Receive Date: 20120529
  Receipt Date: 20120514
  Transmission Date: 20120825
  Serious: Yes (Other)
  Sender: FDA-Public Use
  Company Number: CN-ROCHE-1072617

PATIENT

DRUGS (2)
  1. OXALIPLATIN [Suspect]
     Indication: GASTRIC CANCER
     Route: 042
  2. XELODA [Suspect]
     Indication: GASTRIC CANCER
     Route: 048

REACTIONS (7)
  - THROMBOCYTOPENIA [None]
  - NEUROTOXICITY [None]
  - NAUSEA [None]
  - DIARRHOEA [None]
  - NEUTROPENIA [None]
  - VOMITING [None]
  - LEUKOPENIA [None]
